FAERS Safety Report 7059362-1 (Version None)
Quarter: 2010Q4

REPORT INFORMATION
  Report Type: 
  Country: None (occurrence: None)
  Receive Date: 20101025
  Receipt Date: 20101015
  Transmission Date: 20110411
  Serious: No
  Sender: FDA-Public Use
  Company Number: 2010BI003560

PATIENT
  Age: 50 Year
  Sex: Female

DRUGS (2)
  1. TYSABRI [Suspect]
     Indication: MULTIPLE SCLEROSIS
     Route: 042
     Dates: start: 20090514, end: 20100301
  2. TYSABRI [Suspect]
     Route: 042
     Dates: start: 20100601

REACTIONS (3)
  - FATIGUE [None]
  - FEELING COLD [None]
  - MULTIPLE SCLEROSIS [None]
